FAERS Safety Report 7875156-9 (Version None)
Quarter: 2011Q4

REPORT INFORMATION
  Report Type: 
  Country: None (occurrence: None)
  Receive Date: 20111031
  Receipt Date: 20111019
  Transmission Date: 20120403
  Serious: No
  Sender: FDA-Public Use
  Company Number: US-BIOGENIDEC-2011BI039971

PATIENT
  Sex: Female

DRUGS (2)
  1. TYLENOL-500 [Concomitant]
     Indication: PREMEDICATION
  2. AVONEX [Suspect]
     Indication: MULTIPLE SCLEROSIS
     Route: 030
     Dates: start: 19981101

REACTIONS (4)
  - FEELING ABNORMAL [None]
  - MUSCULOSKELETAL DISORDER [None]
  - MULTIPLE SCLEROSIS [None]
  - COGNITIVE DISORDER [None]
